FAERS Safety Report 5166904-X (Version None)
Quarter: 2006Q4

REPORT INFORMATION
  Report Type: 
  Country: None (occurrence: None)
  Receive Date: 20061129
  Receipt Date: 20061116
  Transmission Date: 20070319
  Serious: Yes (Hospitalization)
  Sender: FDA-Public Use
  Company Number: 2006143197

PATIENT
  Sex: Male

DRUGS (1)
  1. SUTENT [Suspect]
     Dosage: ORAL
     Route: 048
     Dates: start: 20060101

REACTIONS (1)
  - PNEUMOTHORAX [None]
